FAERS Safety Report 8789452 (Version 1)
Quarter: 2012Q4

REPORT INFORMATION
  Report Type: Spontaneous
  Country: US (occurrence: None)
  Receive Date: 20120905
  Receipt Date: 20120905
  Transmission Date: 20130627
  Serious: Yes (Other)
  Sender: FDA-Public Use
  Company Number: AUR-APL-2012-03762

PATIENT
  Age: 55 Year
  Sex: Female

DRUGS (1)
  1. ALENDRONIC ACID (ALENDRONIC ACID) [Suspect]

REACTIONS (4)
  - Femur fracture [None]
  - Compression fracture [None]
  - Rib fracture [None]
  - Pathological fracture [None]
